FAERS Safety Report 10606765 (Version 1)
Quarter: 2014Q4

REPORT INFORMATION
  Report Type: Spontaneous
  Country: US (occurrence: None)
  Receive Date: 20141124
  Receipt Date: 20141124
  Transmission Date: 20150529
  Serious: Yes (Hospitalization)
  Sender: FDA-Public Use
  Company Number: None

PATIENT
  Age: 61 Year
  Sex: Male

DRUGS (3)
  1. HCG [Suspect]
     Active Substance: GONADOTROPHIN, CHORIONIC
     Dates: start: 20130426, end: 20130430
  2. ZONISAMIDE. [Suspect]
     Active Substance: ZONISAMIDE
     Indication: WEIGHT CONTROL
     Dates: start: 20130426, end: 20130514
  3. PHENTERMINE [Suspect]
     Active Substance: PHENTERMINE
     Dates: start: 20130426, end: 20130514

REACTIONS (6)
  - Cholangitis [None]
  - Hepatic fibrosis [None]
  - Drug-induced liver injury [None]
  - Hepatitis [None]
  - Vanishing bile duct syndrome [None]
  - Cholestasis [None]

NARRATIVE: CASE EVENT DATE: 20130530
